FAERS Safety Report 20518636 (Version 1)
Quarter: 2022Q1

REPORT INFORMATION
  Report Type: Spontaneous
  Country: US (occurrence: US)
  Receive Date: 20220225
  Receipt Date: 20220225
  Transmission Date: 20220424
  Serious: No
  Sender: FDA-Public Use
  Company Number: US-SA-SAC20220221001759

PATIENT
  Age: 38 Year
  Sex: Female

DRUGS (3)
  1. KEVZARA [Suspect]
     Active Substance: SARILUMAB
     Indication: Rheumatoid arthritis
     Dosage: 200 MG, QOW
     Route: 058
     Dates: start: 20220202
  2. PREDNISONE [Concomitant]
     Active Substance: PREDNISONE
     Dosage: UNK
  3. IBUPROFEN [Concomitant]
     Active Substance: IBUPROFEN
     Dosage: UNK

REACTIONS (6)
  - Rash [Unknown]
  - Skin exfoliation [Unknown]
  - Pruritus [Recovered/Resolved]
  - Rash pruritic [Not Recovered/Not Resolved]
  - Rash erythematous [Unknown]
  - Dry skin [Unknown]

NARRATIVE: CASE EVENT DATE: 20220201
